FAERS Safety Report 24596102 (Version 1)
Quarter: 2024Q4

REPORT INFORMATION
  Report Type: Spontaneous
  Country: DE (occurrence: DE)
  Receive Date: 20241110
  Receipt Date: 20241110
  Transmission Date: 20250115
  Serious: Yes (Hospitalization, Other)
  Sender: AUROBINDO
  Company Number: DE-ROCHE-2009775

PATIENT
  Age: 63 Year
  Sex: Female
  Weight: 80 kg

DRUGS (15)
  1. DOCETAXEL [Suspect]
     Active Substance: DOCETAXEL
     Indication: Breast cancer metastatic
     Dosage: 157 MILLIGRAM, EVERY WEEK 157 MG, QW (LAST DOSE OF DOCETAXEL PRIOR TO THE EVENT BLOODY NAIL BED WAS
     Route: 042
     Dates: start: 20170908, end: 20171110
  2. DOCETAXEL [Suspect]
     Active Substance: DOCETAXEL
     Dosage: 157 MILLIGRAM, EVERY WEEK (QW)
     Route: 042
     Dates: start: 20171117
  3. DOCETAXEL [Suspect]
     Active Substance: DOCETAXEL
     Dosage: 168 MILLIGRAM, EVERY WEEK (QW)
     Route: 042
     Dates: start: 20171110, end: 20171110
  4. PERTUZUMAB [Suspect]
     Active Substance: PERTUZUMAB
     Indication: Breast cancer metastatic
     Dosage: 1440 MILLIGRAM (480 MG, TIW)
     Route: 042
     Dates: start: 20170901, end: 20171127
  5. PERTUZUMAB [Suspect]
     Active Substance: PERTUZUMAB
     Dosage: 1440 MILLIGRAM, EVERY WEEK (480 MG, TIW)
     Route: 042
     Dates: start: 20170922
  6. PERTUZUMAB [Suspect]
     Active Substance: PERTUZUMAB
     Dosage: 420 MILLIGRAM 3 WEEKS (Q3W)
     Route: 042
     Dates: start: 20170922
  7. HERCEPTIN [Suspect]
     Active Substance: TRASTUZUMAB
     Indication: Breast cancer metastatic
     Dosage: 420 MILLIGRAM, EVERY WEEK
     Route: 042
     Dates: start: 20170922, end: 20180131
  8. HERCEPTIN [Suspect]
     Active Substance: TRASTUZUMAB
     Dosage: 480 MILLIGRAM, EVERY WEEK
     Route: 042
     Dates: start: 20170901, end: 20180131
  9. TRASTUZUMAB [Suspect]
     Active Substance: TRASTUZUMAB
     Indication: Breast cancer metastatic
     Dosage: 420 MILLIGRAM
     Route: 042
     Dates: end: 20180315
  10. TRASTUZUMAB [Suspect]
     Active Substance: TRASTUZUMAB
     Dosage: 1440 MILLIGRAM (480 MG, UNK)
     Route: 042
     Dates: start: 20170901, end: 20180131
  11. TRASTUZUMAB [Suspect]
     Active Substance: TRASTUZUMAB
     Dosage: 1260 MILLIGRAM, EVERY WEEK (420 MG, UNK)
     Route: 042
     Dates: start: 20170922, end: 20180131
  12. TRASTUZUMAB [Suspect]
     Active Substance: TRASTUZUMAB
     Dosage: 864 MILLIGRAM, EVERY WEEK (288 MG, TIW (288 MG, UNK))
     Route: 042
     Dates: start: 20180404
  13. TRASTUZUMAB [Suspect]
     Active Substance: TRASTUZUMAB
     Dosage: 480 MG, Q3W
     Route: 042
     Dates: start: 20170922
  14. TRASTUZUMAB [Suspect]
     Active Substance: TRASTUZUMAB
     Dosage: 1260 MILLIGRAM, EVERY WEEK (420 MILLIGRAM, 3 WEEK)
     Route: 042
     Dates: start: 20180315
  15. ADO-TRASTUZUMAB EMTANSINE [Suspect]
     Active Substance: ADO-TRASTUZUMAB EMTANSINE
     Indication: Breast cancer metastatic
     Dosage: 288 MILLIGRAM (3 WEEK)
     Route: 042

REACTIONS (16)
  - Polyneuropathy [Not Recovered/Not Resolved]
  - Metastases to central nervous system [Not Recovered/Not Resolved]
  - Nail bed bleeding [Not Recovered/Not Resolved]
  - Fatigue [Not Recovered/Not Resolved]
  - Urinary tract infection [Not Recovered/Not Resolved]
  - Sensory disturbance [Not Recovered/Not Resolved]
  - Herpes zoster [Not Recovered/Not Resolved]
  - Malignant neoplasm progression [Not Recovered/Not Resolved]
  - Cataract [Not Recovered/Not Resolved]
  - Nocturia [Not Recovered/Not Resolved]
  - Dyspnoea [Recovered/Resolved]
  - Headache [Recovered/Resolved]
  - Dysuria [Recovered/Resolved]
  - Muscular weakness [Recovered/Resolved]
  - Pneumonia [Not Recovered/Not Resolved]
  - Drug ineffective [Unknown]

NARRATIVE: CASE EVENT DATE: 20170901
